FAERS Safety Report 8304658-6 (Version None)
Quarter: 2012Q2

REPORT INFORMATION
  Report Type: 
  Country: None (occurrence: None)
  Receive Date: 20120423
  Receipt Date: 20120417
  Transmission Date: 20120825
  Serious: Yes (Hospitalization, Disabling, Other)
  Sender: FDA-Public Use
  Company Number: PHHY2010JP61640

PATIENT
  Sex: Male

DRUGS (39)
  1. NOVORAPID [Concomitant]
     Dosage: 48 DF, UNK
     Route: 058
  2. PREDNISOLONE [Concomitant]
     Dosage: 25 MG, DAILY
     Dates: start: 20100922
  3. PREDNISOLONE [Concomitant]
     Dosage: 10 MG, DAILY
     Dates: start: 20110118
  4. ALDACTONE [Concomitant]
     Dosage: 25 MG, UNK
     Route: 048
     Dates: start: 20101006
  5. MUCOSOLVAN [Concomitant]
     Dosage: 45 MG, UNK
     Route: 048
     Dates: start: 20101221
  6. CALCIUM POLYSTYRENE SULFONATE [Suspect]
     Dosage: 3 DF, UNK
     Route: 048
  7. ATELEC [Concomitant]
     Dosage: 20 MG, UNK
     Route: 048
     Dates: start: 20090610
  8. RASILEZ (ALISKIREN) [Concomitant]
     Dosage: 150 MG, UNK
     Dates: start: 20100602
  9. LASIX [Concomitant]
     Dosage: 40 MG, UNK
     Route: 048
     Dates: start: 20101006
  10. NOVORAPID [Concomitant]
     Dosage: 9 DF, UNK
     Route: 058
     Dates: start: 20100910
  11. COTRIM [Concomitant]
     Dosage: 1 DF, UNK
     Route: 048
     Dates: start: 20100917, end: 20110530
  12. PREDNISOLONE [Concomitant]
     Dosage: 15 MG, DAILY
     Route: 048
     Dates: start: 20101221
  13. AFINITOR [Suspect]
     Indication: RENAL CANCER RECURRENT
     Dosage: 5 MG, DAILY
     Route: 048
     Dates: start: 20100902, end: 20100908
  14. AFINITOR [Suspect]
     Dosage: 5 MG, DAILY
     Route: 048
     Dates: start: 20110106, end: 20110309
  15. AFINITOR [Suspect]
     Dosage: 5 MG, DAILY
     Route: 048
     Dates: start: 20110414, end: 20110725
  16. ALLOPURINOL [Concomitant]
     Dosage: 200 MG, UNK
     Dates: start: 20091214
  17. DEPAKENE [Concomitant]
     Dosage: 400 MG, UNK
     Dates: start: 20070521
  18. NOVORAPID [Concomitant]
     Dosage: 30 DF, UNK
     Route: 058
  19. AMLODIPINE [Concomitant]
     Dosage: 5 MG, UNK
     Route: 048
  20. AFINITOR [Suspect]
     Indication: METASTATIC RENAL CELL CARCINOMA
     Dosage: 10 MG, DAILY
     Route: 048
     Dates: start: 20100805, end: 20100901
  21. AFINITOR [Suspect]
     Dosage: 5 MG, DAILY
     Route: 048
     Dates: start: 20110830
  22. IRBESARTAN [Concomitant]
     Dosage: 100 MG, UNK
     Route: 048
     Dates: start: 20090610
  23. TORSEMIDE [Concomitant]
     Dosage: 8 MG, UNK
     Dates: start: 20091209
  24. DOXAZOSIN MESYLATE [Concomitant]
     Dosage: 4 MG, UNK
     Route: 048
     Dates: start: 20091014
  25. NOVORAPID [Concomitant]
     Dosage: 48 DF, UNK
     Route: 058
  26. NOVORAPID [Concomitant]
     Dosage: 50 DF, UNK
     Route: 058
  27. AMLODIPINE [Concomitant]
     Dosage: 5 MG, UNK
     Route: 048
     Dates: start: 20110223
  28. AMLODIPINE [Concomitant]
     Dosage: 10 MG, UNK
     Route: 048
  29. CALCIUM POLYSTYRENE SULFONATE [Suspect]
     Dosage: 3 DF, UNK
     Route: 048
     Dates: start: 20091014
  30. NOVORAPID [Concomitant]
     Dosage: 12 DF, UNK
     Route: 058
  31. NOVORAPID [Concomitant]
     Dosage: 32 DF, UNK
     Route: 058
  32. ALENDRONATE SODIUM [Concomitant]
     Dosage: 35 MG, UNK
     Route: 048
     Dates: start: 20100929
  33. PREDNISOLONE [Concomitant]
     Dosage: 20 MG, DAILY
     Route: 048
     Dates: start: 20101123
  34. CARVEDILOL [Concomitant]
     Dosage: 20 MG, UNK
     Dates: start: 20100106
  35. SLOW-K [Concomitant]
     Dosage: 1800 MG, UNK
     Route: 048
     Dates: start: 20100909, end: 20100930
  36. OMEPRAZOLE [Concomitant]
     Dosage: 20 MG, UNK
     Route: 048
     Dates: start: 20100913
  37. NOVORAPID [Concomitant]
     Dosage: 46 DF, UNK
     Route: 058
  38. NOVORAPID [Concomitant]
     Dosage: 38 DF, UNK
     Route: 058
  39. MAGMITT [Concomitant]
     Dosage: 750 MG, UNK
     Dates: start: 20100929

REACTIONS (12)
  - COUGH [None]
  - ANAEMIA [None]
  - RENAL FAILURE CHRONIC [None]
  - INTERSTITIAL LUNG DISEASE [None]
  - RESPIRATORY FAILURE [None]
  - HYPOKALAEMIA [None]
  - SURFACTANT PROTEIN INCREASED [None]
  - PYREXIA [None]
  - BLOOD CREATININE INCREASED [None]
  - CELL MARKER INCREASED [None]
  - RESPIRATORY DISTRESS [None]
  - METASTASES TO LIVER [None]
